FAERS Safety Report 11399345 (Version 3)
Quarter: 2016Q2

REPORT INFORMATION
  Report Type: Spontaneous
  Country: JP (occurrence: JP)
  Receive Date: 20150820
  Receipt Date: 20160516
  Transmission Date: 20160815
  Serious: Yes (Death, Hospitalization)
  Sender: FDA-Public Use
  Company Number: JP-BAYER-2014-081260

PATIENT
  Age: 15 Year
  Sex: Male
  Weight: 47 kg

DRUGS (12)
  1. URSODEOXYCHOLIC ACID [Concomitant]
     Active Substance: URSODIOL
     Dosage: DAILY DOSE 500 MG
     Route: 048
     Dates: end: 20150715
  2. FAMOTIDINE. [Concomitant]
     Active Substance: FAMOTIDINE
     Dosage: DAILY DOSE 20 MG
     Route: 048
     Dates: end: 20150715
  3. ALOSITOL [Concomitant]
     Active Substance: ALLOPURINOL
     Dosage: DAILY DOSE 300 MG
     Route: 048
     Dates: end: 20150715
  4. NEXAVAR [Suspect]
     Active Substance: SORAFENIB
     Indication: ACUTE MYELOID LEUKAEMIA
     Dosage: DAILY DOSE 600 MG
     Route: 048
     Dates: start: 20150203, end: 20150715
  5. NEXAVAR [Suspect]
     Active Substance: SORAFENIB
     Indication: ACUTE MYELOID LEUKAEMIA
     Dosage: 200 MG, BID
     Route: 048
     Dates: start: 20140520, end: 20140623
  6. NEXAVAR [Suspect]
     Active Substance: SORAFENIB
     Indication: ACUTE MYELOID LEUKAEMIA
     Dosage: 200 MG, QOD
     Route: 048
     Dates: start: 20140625
  7. VALACICLOVIR [Concomitant]
     Active Substance: VALACYCLOVIR HYDROCHLORIDE
     Dosage: DAILY DOSE 1500 MG
     Route: 048
     Dates: end: 20150715
  8. LOXOPROFEN [Concomitant]
     Active Substance: LOXOPROFEN
     Dosage: DAILY DOSE 180 MG
     Route: 048
     Dates: end: 20150715
  9. MORPHINE HYDROCHLORIDE [Concomitant]
     Active Substance: MORPHINE HYDROCHLORIDE
     Dosage: DAILY DOSE 25 MG
     Route: 042
  10. VFEND [Concomitant]
     Active Substance: VORICONAZOLE
     Dosage: DAILY DOSE 400 MG
     Route: 048
     Dates: end: 20150715
  11. PREDONINE [Concomitant]
     Active Substance: PREDNISOLONE\PREDNISOLONE ACETATE\PREDNISOLONE SODIUM SUCCINATE
     Dosage: DAILY DOSE 10 MG
     Route: 048
     Dates: end: 20150715
  12. CEFEPIME HYDROCHLORIDE. [Concomitant]
     Active Substance: CEFEPIME HYDROCHLORIDE
     Dosage: DAILY DOSE 4 G
     Route: 042

REACTIONS (8)
  - Neutrophil count decreased [Not Recovered/Not Resolved]
  - Off label use [None]
  - Acute myeloid leukaemia [Fatal]
  - Anaemia [Not Recovered/Not Resolved]
  - Stomatitis [Unknown]
  - Diarrhoea [Not Recovered/Not Resolved]
  - Off label use [None]
  - Platelet count decreased [Not Recovered/Not Resolved]

NARRATIVE: CASE EVENT DATE: 20140520
